FAERS Safety Report 25062803 (Version 1)
Quarter: 2025Q1

REPORT INFORMATION
  Report Type: Spontaneous
  Country: US (occurrence: None)
  Receive Date: 20250310
  Receipt Date: 20250310
  Transmission Date: 20250409
  Serious: Yes (Other)
  Sender: FDA-CTU
  Company Number: None

PATIENT
  Age: 42 Year
  Sex: Female
  Weight: 63 kg

DRUGS (27)
  1. EYLEA [Suspect]
     Active Substance: AFLIBERCEPT
     Indication: Diabetic retinopathy
     Dosage: FREQUENCY : MONTHLY;?
     Route: 031
     Dates: start: 20241202, end: 20250107
  2. EYLEA [Suspect]
     Active Substance: AFLIBERCEPT
     Indication: Vitreous haemorrhage
  3. EYLEA [Suspect]
     Active Substance: AFLIBERCEPT
     Indication: Macular oedema
  4. lYUMJEV WITH INSULIN PUMP (TSLIM X2) [Concomitant]
  5. DEXCOM G7 [Concomitant]
  6. KLONOPIN [Concomitant]
     Active Substance: CLONAZEPAM
  7. REGLAN [Concomitant]
     Active Substance: METOCLOPRAMIDE HYDROCHLORIDE
  8. HYDROXYZINE [Concomitant]
     Active Substance: HYDROXYZINE HYDROCHLORIDE
  9. CANNABIS SATIVA SUBSP. INDICA TOP [Concomitant]
     Active Substance: CANNABIS SATIVA SUBSP. INDICA TOP
  10. TRAMADOL [Concomitant]
     Active Substance: TRAMADOL
  11. HYDROMORPHONE [Concomitant]
     Active Substance: HYDROMORPHONE
  12. BENADRYL [Concomitant]
     Active Substance: DIPHENHYDRAMINE HYDROCHLORIDE
  13. VITAMIN D3 + K [Concomitant]
  14. L-METHYL FOLATE [Concomitant]
  15. BLACK SEED OIL [Concomitant]
  16. ADRENAL DISICCATED [Concomitant]
  17. SELENIUM [Concomitant]
     Active Substance: SELENIUM
  18. MAGNESIUM [Concomitant]
     Active Substance: MAGNESIUM
  19. DL-PHENYLALANINE [Concomitant]
     Active Substance: PHENYLALANINE, DL-
  20. LITHIUM OROTATE [Concomitant]
     Active Substance: LITHIUM OROTATE
  21. BEEF LIVER [Concomitant]
     Active Substance: BEEF LIVER
  22. PROBIOTICS NOS [Concomitant]
     Active Substance: PROBIOTICS NOS
  23. PQQ [Concomitant]
  24. GINGER [Concomitant]
     Active Substance: GINGER
  25. IODINE [Concomitant]
     Active Substance: IODINE
  26. QUERCETIN [Concomitant]
     Active Substance: QUERCETIN
  27. VARIOUS HOMEOPATHY REMEDIES [Concomitant]

REACTIONS (16)
  - Swelling face [None]
  - Lacrimation increased [None]
  - Paranasal sinus discomfort [None]
  - Ear discomfort [None]
  - Head discomfort [None]
  - Ocular discomfort [None]
  - Pain [None]
  - Rhinorrhoea [None]
  - Sinus congestion [None]
  - Eye swelling [None]
  - Migraine [None]
  - Photophobia [None]
  - Eye pain [None]
  - Eye irritation [None]
  - Sinus pain [None]
  - Visual impairment [None]

NARRATIVE: CASE EVENT DATE: 20250106
